FAERS Safety Report 23753396 (Version 3)
Quarter: 2024Q4

REPORT INFORMATION
  Report Type: Spontaneous
  Country: FR (occurrence: FR)
  Receive Date: 20240417
  Receipt Date: 20241003
  Transmission Date: 20250115
  Serious: Yes (Hospitalization, Other)
  Sender: PFIZER
  Company Number: FR-SA-SAC20240403001449

PATIENT
  Age: 71 Year
  Sex: Female

DRUGS (17)
  1. VORICONAZOLE [Suspect]
     Active Substance: VORICONAZOLE
     Indication: Aspergillus infection
     Dosage: UNK
     Route: 065
     Dates: start: 20231111
  2. RUXOLITINIB [Suspect]
     Active Substance: RUXOLITINIB
     Indication: Chronic graft versus host disease
     Dosage: 10 MG, 1X/DAY
     Route: 065
     Dates: start: 20230428, end: 20240130
  3. REZUROCK [Suspect]
     Active Substance: BELUMOSUDIL
     Indication: Chronic graft versus host disease
     Dosage: 200 MG, 2X/DAY (EVERY 12 HOURS)
     Route: 048
     Dates: start: 20231113, end: 20231130
  4. REZUROCK [Suspect]
     Active Substance: BELUMOSUDIL
     Dosage: 200 MG, 2X/DAY (EVERY 12 HOURS)
     Dates: start: 20240115, end: 20240117
  5. REZUROCK [Suspect]
     Active Substance: BELUMOSUDIL
     Dosage: 200 MG, 2X/DAY (EVERY 12 HOURS)
     Dates: start: 20240201, end: 20240319
  6. SORAFENIB [Concomitant]
     Active Substance: SORAFENIB
     Dosage: UNK
     Route: 065
  7. PRAZEPAM [Concomitant]
     Active Substance: PRAZEPAM
  8. SERETIDE [Concomitant]
     Active Substance: FLUTICASONE PROPIONATE\SALMETEROL XINAFOATE
  9. ACETAMINOPHEN [Concomitant]
     Active Substance: ACETAMINOPHEN
     Dosage: UNK
     Route: 065
  10. LYRICA [Concomitant]
     Active Substance: PREGABALIN
     Dosage: UNK
     Route: 065
  11. VALACYCLOVIR HYDROCHLORIDE [Concomitant]
     Active Substance: VALACYCLOVIR HYDROCHLORIDE
     Dosage: UNK
     Route: 065
  12. PREDNISONE [Concomitant]
     Active Substance: PREDNISONE
     Dosage: UNK
     Route: 065
  13. ANASTROZOLE [Concomitant]
     Active Substance: ANASTROZOLE
     Dosage: UNK
     Route: 065
  14. ALMOND OIL\WHITE WAX [Concomitant]
     Active Substance: ALMOND OIL\WHITE WAX
  15. BISOPROLOL [Concomitant]
     Active Substance: BISOPROLOL\BISOPROLOL FUMARATE
     Dosage: UNK
     Route: 065
  16. PANTOPRAZOLE [Concomitant]
     Active Substance: PANTOPRAZOLE
     Dosage: UNK
     Route: 065
  17. BACTRIM [Concomitant]
     Active Substance: SULFAMETHOXAZOLE\TRIMETHOPRIM
     Dosage: UNK
     Route: 065

REACTIONS (4)
  - Bronchopulmonary aspergillosis [Recovering/Resolving]
  - Diarrhoea [Unknown]
  - Embolism [Unknown]
  - Haemoptysis [Unknown]

NARRATIVE: CASE EVENT DATE: 20231130
